FAERS Safety Report 6611589-6 (Version None)
Quarter: 2010Q1

REPORT INFORMATION
  Report Type: 
  Country: None (occurrence: None)
  Receive Date: 20100226
  Receipt Date: 20100226
  Transmission Date: 20100710
  Serious: Yes (Other)
  Sender: FDA-Public Use
  Company Number: None

PATIENT
  Age: 17 Year
  Sex: Female
  Weight: 52.1637 kg

DRUGS (2)
  1. TRAMADOL HCL [Suspect]
     Indication: BACK PAIN
     Dosage: 1 - 2 TABLETS EVERY 4 - 6 HOURS PO
     Route: 048
     Dates: start: 20100125, end: 20100219
  2. TRAMADOL HCL [Suspect]
     Indication: PROCEDURAL PAIN
     Dosage: 1 - 2 TABLETS EVERY 4 - 6 HOURS PO
     Route: 048
     Dates: start: 20100125, end: 20100219

REACTIONS (16)
  - ANXIETY [None]
  - CHILLS [None]
  - CONVULSION [None]
  - DECREASED APPETITE [None]
  - DEPRESSION [None]
  - DIARRHOEA [None]
  - DISCOMFORT [None]
  - DRUG WITHDRAWAL SYNDROME [None]
  - HYPERHIDROSIS [None]
  - INSOMNIA [None]
  - MUSCLE SPASMS [None]
  - MYALGIA [None]
  - NAUSEA [None]
  - PANIC ATTACK [None]
  - TEARFULNESS [None]
  - VOMITING [None]
